FAERS Safety Report 12565432 (Version 1)
Quarter: 2016Q3

REPORT INFORMATION
  Report Type: Spontaneous
  Country: ES (occurrence: ES)
  Receive Date: 20160718
  Receipt Date: 20160718
  Transmission Date: 20161109
  Serious: Yes (Other)
  Sender: FDA-Public Use
  Company Number: ES-ACTAVIS-2016-15644

PATIENT
  Age: 65 Year
  Sex: Female

DRUGS (4)
  1. TEGAFUR [Suspect]
     Active Substance: TEGAFUR
     Indication: ADENOCARCINOMA PANCREAS
     Dosage: THROUGHOUT RADIOTHERAPY TREATMENT AT 1,200 MG/DAY
     Route: 048
  2. GEMCITABINE [Suspect]
     Active Substance: GEMCITABINE\GEMCITABINE HYDROCHLORIDE
     Dosage: DAYS 1, 8 AND 15
     Route: 042
  3. GEMCITABINE [Suspect]
     Active Substance: GEMCITABINE\GEMCITABINE HYDROCHLORIDE
     Indication: ADENOCARCINOMA PANCREAS
     Dosage: DAYS 1, 8 AND 15 (3 CYCLES)
     Route: 042
  4. LETROZOLE. [Concomitant]
     Active Substance: LETROZOLE
     Indication: BREAST CANCER STAGE I
     Dosage: UNK
     Route: 048

REACTIONS (8)
  - Neutropenia [Unknown]
  - Asthenia [Unknown]
  - Biliary tract disorder [Unknown]
  - Diabetes mellitus [Unknown]
  - Pancreatic insufficiency [Unknown]
  - Anaemia [Unknown]
  - Enteritis [Unknown]
  - Cholangitis acute [Unknown]
